FAERS Safety Report 9016066 (Version 1)
Quarter: 2013Q1

REPORT INFORMATION
  Report Type: Other
  Country: JP (occurrence: JP)
  Receive Date: 20130116
  Receipt Date: 20130116
  Transmission Date: 20140127
  Serious: Yes (Death, Other)
  Sender: FDA-Public Use
  Company Number: JP-ACTELION-A-CH2013-77659

PATIENT
  Sex: Female

DRUGS (4)
  1. TRACLEER [Suspect]
     Indication: PERSISTENT FOETAL CIRCULATION
     Dosage: 5 MG/KG, UNK
     Route: 048
  2. NITRIC OXIDE [Concomitant]
     Dosage: 5 UNK, UNK
  3. SILDENAFIL [Concomitant]
  4. BERAPROST [Concomitant]

REACTIONS (10)
  - Pulmonary hypertension [Fatal]
  - Infection [Fatal]
  - General physical health deterioration [Unknown]
  - Intestinal malrotation [Unknown]
  - Pneumonia [Unknown]
  - Intestinal perforation [Unknown]
  - Intestinal operation [Unknown]
  - C-reactive protein increased [Fatal]
  - Oxygen saturation decreased [Fatal]
  - Drug ineffective [Unknown]
